FAERS Safety Report 12743053 (Version 1)
Quarter: 2016Q3

REPORT INFORMATION
  Report Type: Spontaneous
  Country: US (occurrence: US)
  Receive Date: 20160914
  Receipt Date: 20160914
  Transmission Date: 20161109
  Serious: No
  Sender: FDA-Public Use
  Company Number: US-SIGMA-TAU US-2016STPI000248

PATIENT
  Age: 60 Year
  Sex: Male

DRUGS (5)
  1. MATULANE [Suspect]
     Active Substance: PROCARBAZINE HYDROCHLORIDE
     Indication: HODGKIN^S DISEASE NODULAR SCLEROSIS
     Dosage: 200 MG, QD
     Route: 048
     Dates: start: 20160113, end: 20160311
  2. CARMUSTINE [Suspect]
     Active Substance: CARMUSTINE
     Indication: HODGKIN^S DISEASE NODULAR SCLEROSIS
     Dosage: 160 MG/M2, OTHER
     Route: 042
     Dates: start: 20151231, end: 20160311
  3. VINBLASTINE [Suspect]
     Active Substance: VINBLASTINE
     Indication: HODGKIN^S DISEASE NODULAR SCLEROSIS
  4. CYCLOPHOSPHAMIDE. [Suspect]
     Active Substance: CYCLOPHOSPHAMIDE
     Indication: HODGKIN^S DISEASE
     Dosage: 965 MG, OTHER
     Route: 042
     Dates: start: 20151231, end: 20160311
  5. PREDNISONE. [Suspect]
     Active Substance: PREDNISONE
     Indication: HODGKIN^S DISEASE NODULAR SCLEROSIS

REACTIONS (5)
  - Pupillary disorder [Unknown]
  - Night sweats [Unknown]
  - Migraine [Recovered/Resolved]
  - Macular degeneration [Unknown]
  - Cataract [Unknown]

NARRATIVE: CASE EVENT DATE: 20160328
